FAERS Safety Report 9080203 (Version 1)
Quarter: 2013Q1

REPORT INFORMATION
  Report Type: Report from Study
  Country: US (occurrence: US)
  Receive Date: 20130130
  Receipt Date: 20130130
  Transmission Date: 20140127
  Serious: No
  Sender: FDA-Public Use
  Company Number: US-ABBOTT-12P-163-0936846-00

PATIENT
  Sex: Male

DRUGS (9)
  1. HUMIRA 40 MG/0.8 ML PEN [Suspect]
     Indication: CROHN^S DISEASE
     Route: 058
     Dates: start: 201204
  2. CO Q-10 [Concomitant]
     Indication: PRODUCT USED FOR UNKNOWN INDICATION
  3. METOPROLOL [Concomitant]
     Indication: BLOOD PRESSURE
  4. PREDNISONE [Concomitant]
     Indication: CROHN^S DISEASE
  5. REQUIP [Concomitant]
     Indication: PRODUCT USED FOR UNKNOWN INDICATION
  6. VITAMIN D [Concomitant]
     Indication: PRODUCT USED FOR UNKNOWN INDICATION
  7. ROPINIROLE [Concomitant]
     Indication: SLEEP APNOEA SYNDROME
     Dosage: DAILY IN SUMMERTIME OTHERWISE PRN
  8. ROPINIROLE [Concomitant]
     Indication: RESTLESS LEGS SYNDROME
  9. ASACOL [Concomitant]
     Indication: CROHN^S DISEASE

REACTIONS (3)
  - Pruritus [Not Recovered/Not Resolved]
  - Crohn^s disease [Not Recovered/Not Resolved]
  - Drug ineffective [Not Recovered/Not Resolved]
